FAERS Safety Report 9492905 (Version 2)
Quarter: 2013Q4

REPORT INFORMATION
  Report Type: Spontaneous
  Country: US (occurrence: US)
  Receive Date: 20130902
  Receipt Date: 20131016
  Transmission Date: 20140711
  Serious: No
  Sender: FDA-Public Use
  Company Number: US-009507513-1308USA008128

PATIENT
  Age: 19 Year
  Sex: Female
  Weight: 65.76 kg

DRUGS (1)
  1. IMPLANON [Suspect]
     Indication: CONTRACEPTION
     Dosage: UNKNOWN, 3 YEARS
     Route: 059
     Dates: start: 20090817

REACTIONS (3)
  - Device deployment issue [Unknown]
  - Medical device complication [Unknown]
  - Incorrect drug administration duration [Unknown]
